FAERS Safety Report 6107636-0 (Version None)
Quarter: 2009Q1

REPORT INFORMATION
  Report Type: 
  Country: None (occurrence: None)
  Receive Date: 20090306
  Receipt Date: 20090306
  Transmission Date: 20090719
  Serious: Yes (Hospitalization)
  Sender: FDA-Public Use
  Company Number: None

PATIENT

DRUGS (2)
  1. DEPAKOTE ER [Suspect]
     Dosage: FOR 2-3 YEARS
  2. RISPERADOL [Suspect]
     Dosage: FOR 2-3 YEARS

REACTIONS (1)
  - POLYCYSTIC OVARIES [None]
